FAERS Safety Report 8817958 (Version 2)
Quarter: 2012Q4

REPORT INFORMATION
  Report Type: 
  Country: US (occurrence: US)
  Receive Date: 20121001
  Receipt Date: 20121016
  Transmission Date: 20130627
  Serious: No
  Sender: FDA-Public Use
  Company Number: US-VERTEX PHARMACEUTICAL INC.-2012-021824

PATIENT
  Age: 59 Year
  Sex: Female
  Weight: 67 kg

DRUGS (5)
  1. VX-950 [Suspect]
     Indication: HEPATITIS C
     Dosage: 750 mg, tid
     Route: 048
     Dates: start: 20120913
  2. RIBAVIRIN [Concomitant]
     Indication: HEPATITIS C
     Dosage: 600 mg in AM + 400 mg in PM
     Route: 048
     Dates: start: 20120913
  3. PEGASYS [Concomitant]
     Indication: HEPATITIS C
     Dosage: 180 ?g, weekly
     Route: 058
     Dates: start: 20120912
  4. LEXAPRO [Concomitant]
  5. ACTONEL [Concomitant]

REACTIONS (8)
  - Epistaxis [Recovered/Resolved]
  - Skin burning sensation [Unknown]
  - Swelling face [Unknown]
  - Rash generalised [Recovered/Resolved]
  - Skin exfoliation [Unknown]
  - Erythema [Unknown]
  - Diarrhoea [Recovered/Resolved]
  - Pruritus [Recovered/Resolved]
